FAERS Safety Report 14851906 (Version 1)
Quarter: 2018Q2

REPORT INFORMATION
  Report Type: Spontaneous
  Country: CR (occurrence: CR)
  Receive Date: 20180420
  Receipt Date: 20180420
  Transmission Date: 20180711
  Serious: Yes (Disabling)
  Sender: FDA-Public Use
  Company Number: None

PATIENT
  Age: 45 Year
  Sex: Male
  Weight: 67 kg

DRUGS (5)
  1. VENADRYL [Concomitant]
  2. TOFRANIL [Suspect]
     Active Substance: IMIPRAMINE HYDROCHLORIDE
     Indication: SUICIDAL IDEATION
     Dosage: ?          QUANTITY:1 CAPSULE(S);?
     Route: 048
  3. FLUOXETINA [Concomitant]
     Active Substance: FLUOXETINE HYDROCHLORIDE
  4. IMIPRAMINA [Concomitant]
  5. TOFRANIL [Suspect]
     Active Substance: IMIPRAMINE HYDROCHLORIDE
     Indication: DEPRESSION
     Dosage: ?          QUANTITY:1 CAPSULE(S);?
     Route: 048

REACTIONS (7)
  - Synovial cyst [None]
  - Pain [None]
  - Constipation [None]
  - Dizziness [None]
  - Infection [None]
  - Sleep disorder [None]
  - Vision blurred [None]

NARRATIVE: CASE EVENT DATE: 20180419
